FAERS Safety Report 11290613 (Version 2)
Quarter: 2015Q3

REPORT INFORMATION
  Report Type: Report from Study
  Country: JP (occurrence: None)
  Receive Date: 20150720
  Receipt Date: 20150811
  Transmission Date: 20151125
  Serious: Yes (Death)
  Sender: FDA-Public Use
  Company Number: 2015FE02381

PATIENT
  Age: 88 Year
  Sex: Male
  Weight: 48 kg

DRUGS (8)
  1. ASPENON (APRINDINE HYDROCHLORIDE) [Concomitant]
  2. SIGMART (NICORANDIL) [Concomitant]
     Active Substance: NICORANDIL
  3. DIGOSIN (DICOXIN) [Concomitant]
  4. GONAX [Suspect]
     Active Substance: DEGARELIX
     Indication: PROSTATE CANCER METASTATIC
     Dosage: 240 MG, ONCE/SINGLE
     Route: 058
     Dates: start: 20131105, end: 20131105
  5. CALCIUM LACTATE (CALCIUM LACTATE) [Concomitant]
     Active Substance: CALCIUM LACTATE
  6. ROCALTROL (CALCITRIOL) [Concomitant]
  7. LASIX [Concomitant]
     Active Substance: FUROSEMIDE
  8. RANMARK (DENOSUMAB) [Concomitant]
     Active Substance: DENOSUMAB

REACTIONS (5)
  - Prostatic specific antigen increased [None]
  - Cardiac failure [None]
  - Multi-organ failure [None]
  - Hepatic failure [None]
  - Renal failure [None]

NARRATIVE: CASE EVENT DATE: 20131215
